FAERS Safety Report 6119226-4 (Version None)
Quarter: 2009Q1

REPORT INFORMATION
  Report Type: 
  Country: None (occurrence: None)
  Receive Date: 20090316
  Receipt Date: 20090303
  Transmission Date: 20090719
  Serious: Yes (Other)
  Sender: FDA-Public Use
  Company Number: US-ROCHE-618636

PATIENT
  Sex: Female

DRUGS (14)
  1. BONIVA [Suspect]
     Indication: OSTEOPOROSIS
     Route: 048
     Dates: start: 20060401
  2. ARTHROTEC [Suspect]
     Indication: DRUG USE FOR UNKNOWN INDICATION
     Dosage: NSAID
     Route: 065
  3. PREMARIN [Concomitant]
  4. DIOVAN [Concomitant]
  5. FUROSEMIDE [Concomitant]
     Dosage: DRUG: GENERIC LASIX
  6. SERTRALINE [Concomitant]
     Dosage: DRUG: GENERIC ZOLOFT
  7. ACETAMINOPHEN WITH PROPOXYPHENE HCL TAB [Concomitant]
     Dosage: DRUG: GENERIC DARVOCET
  8. FISH OIL [Concomitant]
  9. N-ACETYLCYSTEINE [Concomitant]
  10. L-CARNITINE [Concomitant]
  11. CALCIUM [Concomitant]
  12. VITAMIN D [Concomitant]
  13. M.V.I. [Concomitant]
  14. LIPITOR [Concomitant]

REACTIONS (1)
  - RENAL DISORDER [None]
